FAERS Safety Report 23971974 (Version 1)
Quarter: 2024Q2

REPORT INFORMATION
  Report Type: Spontaneous
  Country: DE (occurrence: None)
  Receive Date: 20240613
  Receipt Date: 20240613
  Transmission Date: 20240715
  Serious: Yes (Hospitalization, Other)
  Sender: FDA-Public Use
  Company Number: 2024A113722

PATIENT
  Age: 53 Year
  Sex: Female

DRUGS (14)
  1. GEFITINIB [Suspect]
     Active Substance: GEFITINIB
     Indication: Squamous cell carcinoma
     Dosage: 1 DOSAGE FORM, QD
     Route: 048
     Dates: start: 202402, end: 202405
  2. GEFITINIB [Suspect]
     Active Substance: GEFITINIB
     Indication: Vulval cancer
     Dosage: 1 DOSAGE FORM, QD
     Route: 048
     Dates: start: 202402, end: 202405
  3. CAPMATINIB [Suspect]
     Active Substance: CAPMATINIB
     Indication: Vulval cancer
     Dosage: UNK
     Dates: start: 202403, end: 202405
  4. CAPMATINIB [Suspect]
     Active Substance: CAPMATINIB
     Indication: Squamous cell carcinoma
     Dosage: UNK
     Dates: start: 202403, end: 202405
  5. BUPRENORPHINE [Concomitant]
     Active Substance: BUPRENORPHINE
     Indication: Product used for unknown indication
     Dosage: 1 DOSAGE FORM, QD (STRENGTH: 5 MICROGRAM) (TRANSDERMAL, INTERMITTING, CONTINUOUSLY) (0-1-0 FOR 16...
  6. BUPRENORPHINE [Concomitant]
     Active Substance: BUPRENORPHINE
     Indication: Product used for unknown indication
     Dosage: 1 DOSAGE FORM (TRANSDERMAL, INTERMITTING, CONTINUOUSLY) (EVERY 168 HOURS)
     Route: 062
  7. METAMIZOL [Concomitant]
     Active Substance: METAMIZOLE SODIUM
     Indication: Pain
     Dosage: 1000 MG PRN (MAXIMAL 4 TIMES PER 24 HOURS)
     Route: 040
  8. ELECTROLYTES NOS\MINERALS [Concomitant]
     Active Substance: ELECTROLYTES NOS\MINERALS
     Indication: Product used for unknown indication
     Dosage: 10 ML (AT 11 PM)
     Route: 041
  9. .ALPHA.-TOCOPHEROL\ERGOCALCIFEROL\PHYTONADIONE\VITAMIN A [Concomitant]
     Active Substance: .ALPHA.-TOCOPHEROL\ERGOCALCIFEROL\PHYTONADIONE\VITAMIN A
     Indication: Product used for unknown indication
     Dosage: 1 DOSAGE FORM (AT 11 PM)
     Route: 040
  10. ASCORBIC ACID\BIOTIN\CYANOCOBALAMIN\FOLIC ACID\NIACINAMIDE\PANTOTHENIC [Concomitant]
     Active Substance: ASCORBIC ACID\BIOTIN\CYANOCOBALAMIN\FOLIC ACID\NIACINAMIDE\PANTOTHENIC ACID\PYRIDOXINE\RIBOFLAVIN\TH
     Indication: Product used for unknown indication
     Route: 040
  11. SMOFKABIVEN CENTRAL [Concomitant]
     Indication: Product used for unknown indication
     Dosage: 986 ML (11 PM)
     Route: 040
  12. METOCLOPRAMIDE HYDROCHLORIDE [Concomitant]
     Active Substance: METOCLOPRAMIDE HYDROCHLORIDE
     Indication: Nausea
     Dosage: 1 DOSAGE FORM PRN ((MAXIMAL 3 TIMES PER 24 HOURS)
     Route: 048
  13. MORPHINE HYDROCHLORIDE [Concomitant]
     Active Substance: MORPHINE HYDROCHLORIDE
     Indication: Product used for unknown indication
     Dosage: 2.5 MG QID (DROPS FOR ORAL INTAKE)
     Route: 048
  14. LORAZEPAM [Concomitant]
     Active Substance: LORAZEPAM
     Indication: Pain
     Dosage: 1 DOSAGE FORM PRN ((MAXIMAL 3 TIMES EVERY 24 HOURS)
     Route: 048

REACTIONS (23)
  - Hypokalaemia [Unknown]
  - Necrosis [Not Recovered/Not Resolved]
  - Ascites [Unknown]
  - Osteomyelitis [Unknown]
  - Osteonecrosis [Unknown]
  - Femoral artery aneurysm [Recovered/Resolved]
  - Wound [Unknown]
  - Neoplasm progression [Unknown]
  - Peripheral ischaemia [Not Recovered/Not Resolved]
  - Skin discolouration [Not Recovered/Not Resolved]
  - Impaired healing [Unknown]
  - Generalised oedema [Unknown]
  - Pain [Not Recovered/Not Resolved]
  - General physical health deterioration [Unknown]
  - Atelectasis [Unknown]
  - Peroneal nerve palsy [Not Recovered/Not Resolved]
  - Peripheral coldness [Not Recovered/Not Resolved]
  - Haemoglobin decreased [Recovering/Resolving]
  - Pleural effusion [Unknown]
  - Hepatic enzyme increased [Unknown]
  - Vascular pseudoaneurysm [Unknown]
  - Off label use [Not Recovered/Not Resolved]
  - Product supply issue [Unknown]

NARRATIVE: CASE EVENT DATE: 20240501
